FAERS Safety Report 9371861 (Version 1)
Quarter: 2013Q2

REPORT INFORMATION
  Report Type: Spontaneous
  Country: FR (occurrence: None)
  Receive Date: 20130618
  Receipt Date: 20130618
  Transmission Date: 20140414
  Serious: Yes (Life-Threatening)
  Sender: FDA-Public Use
  Company Number: 2013036468

PATIENT
  Age: 64 Year
  Sex: Male

DRUGS (1)
  1. PRIVIGEN [Suspect]
     Indication: ENCEPHALITIS AUTOIMMUNE
     Dosage: 0.4G/KG/D, INTRAVENOUS (NOT OTHERWISE SPECIFED)
     Route: 042

REACTIONS (1)
  - Haemolytic anaemia [None]
